FAERS Safety Report 9312764 (Version 2)
Quarter: 2013Q4

REPORT INFORMATION
  Report Type: Spontaneous
  Country: US (occurrence: US)
  Receive Date: 20130528
  Receipt Date: 20131107
  Transmission Date: 20140711
  Serious: Yes (Death, Hospitalization)
  Sender: FDA-Public Use
  Company Number: US-B.I. PHARMACEUTICALS,INC./RIDGEFIELD-2013-BI-14579BP

PATIENT
  Sex: Female
  Weight: 49.94 kg

DRUGS (14)
  1. PRADAXA [Suspect]
     Indication: ANTICOAGULANT THERAPY
     Dosage: 75 MG
     Dates: start: 20101221, end: 20110904
  2. PRADAXA [Suspect]
     Indication: ATRIAL FIBRILLATION
  3. REMERON [Concomitant]
     Dosage: 15 MG
  4. BUMEX [Concomitant]
     Dosage: 1 MG
  5. LEVOTHYROXINE [Concomitant]
     Dosage: 50 MCG
  6. LOSARTAN [Concomitant]
     Dosage: 50 MG
  7. METOPROLOL [Concomitant]
     Dosage: 50 MG
  8. POTASSIUM CHLORIDE [Concomitant]
     Dosage: 10 MEQ
  9. VITAMIN C [Concomitant]
     Dosage: 500 MG
  10. CALCIUM WITH VITAMIN D [Concomitant]
  11. CLARITIN [Concomitant]
     Dosage: 10 MG
  12. GLUCOSAMINE/CHONDROITIN SULFATE [Concomitant]
  13. IRON SULFATE [Concomitant]
  14. MULTIVITAMINS [Concomitant]

REACTIONS (6)
  - Gastrointestinal haemorrhage [Fatal]
  - Anaemia [Unknown]
  - Coagulopathy [Unknown]
  - Renal failure acute [Unknown]
  - Hyperkalaemia [Unknown]
  - Metabolic acidosis [Unknown]
